FAERS Safety Report 15393852 (Version 1)
Quarter: 2018Q4

REPORT INFORMATION
  Report Type: Spontaneous
  Country: US (occurrence: FR)
  Receive Date: 20180917
  Receipt Date: 20180917
  Transmission Date: 20190204
  Serious: Yes (Hospitalization, Other)
  Sender: FDA-Public Use
  Company Number: FR-INTERNATIONAL MEDICATION SYSTEMS, LIMITED-2055026

PATIENT
  Age: 4 Year
  Sex: Female

DRUGS (9)
  1. FUROSEMIDE. [Suspect]
     Active Substance: FUROSEMIDE
     Route: 048
  2. SODIUM HYDROGEN CARBONATE (SODIUM BICARBONATE) [Suspect]
     Active Substance: SODIUM BICARBONATE
     Indication: MINERAL SUPPLEMENTATION
     Route: 048
  3. FLIXOTIDE [Suspect]
     Active Substance: FLUTICASONE PROPIONATE
     Route: 055
  4. CALCIUM CARBONATE. [Suspect]
     Active Substance: CALCIUM CARBONATE
     Route: 048
  5. AMLOR [Suspect]
     Active Substance: AMLODIPINE BESYLATE
     Route: 048
  6. LEVOCARNITINE. [Suspect]
     Active Substance: LEVOCARNITINE
     Route: 048
  7. RENVELA [Suspect]
     Active Substance: SEVELAMER CARBONATE
     Route: 048
  8. ARANESP [Suspect]
     Active Substance: DARBEPOETIN ALFA
     Route: 042
     Dates: start: 201710
  9. MINIPRESS [Suspect]
     Active Substance: PRAZOSIN HYDROCHLORIDE
     Route: 048

REACTIONS (1)
  - Status epilepticus [Recovered/Resolved]

NARRATIVE: CASE EVENT DATE: 20171127
